FAERS Safety Report 4334233-X (Version None)
Quarter: 2004Q2

REPORT INFORMATION
  Report Type: 
  Country: None (occurrence: None)
  Receive Date: 20040405
  Receipt Date: 20040329
  Transmission Date: 20050107
  Serious: Yes (Death)
  Sender: FDA-Public Use
  Company Number: T04-USA-01379-01

PATIENT
  Age: 87 Year
  Sex: Female
  Weight: 53.978 kg

DRUGS (9)
  1. MEMANTINE HCL [Suspect]
     Indication: DEMENTIA ALZHEIMER'S TYPE
     Dosage: 2 TABLET BID PO
     Route: 048
     Dates: start: 20040228, end: 20040318
  2. MEMANTINE HCL [Suspect]
     Indication: DEMENTIA ALZHEIMER'S TYPE
     Dosage: 2 TABLET BID PO
     Route: 048
  3. SYNTHROID [Concomitant]
  4. LANOXIN [Concomitant]
  5. NISOLDIPINE [Concomitant]
  6. DILTIAZEM [Concomitant]
  7. AMBIEN [Concomitant]
  8. MULTI-VITAMINS [Concomitant]
  9. IRON [Concomitant]

REACTIONS (4)
  - COMA [None]
  - DIET REFUSAL [None]
  - HALLUCINATION [None]
  - INCOHERENT [None]
